FAERS Safety Report 18084052 (Version 8)
Quarter: 2021Q3

REPORT INFORMATION
  Report Type: Spontaneous
  Country: CA (occurrence: CA)
  Receive Date: 20200729
  Receipt Date: 20210706
  Transmission Date: 20211014
  Serious: Yes (Other)
  Sender: FDA-Public Use
  Company Number: CA-CELLTRION INC.-2018CA023486

PATIENT

DRUGS (24)
  1. INFLECTRA [Suspect]
     Active Substance: INFLIXIMAB-DYYB
     Dosage: 320 MG, 0, 2 ,6 WEEKS, AND EVERY 8 WEEKS
     Route: 042
     Dates: start: 20181108
  2. INFLECTRA [Suspect]
     Active Substance: INFLIXIMAB-DYYB
     Dosage: 320 MG, 0, 2 ,6 WEEKS, AND EVERY 8 WEEKS
     Route: 042
     Dates: start: 20191015
  3. INFLECTRA [Suspect]
     Active Substance: INFLIXIMAB-DYYB
     Dosage: 400 MG EVERY 8 WEEKS
     Route: 042
     Dates: start: 20200526
  4. INFLECTRA [Suspect]
     Active Substance: INFLIXIMAB-DYYB
     Dosage: 400 MG EVERY 8 WEEKS
     Route: 042
     Dates: start: 20201120
  5. INFLECTRA [Suspect]
     Active Substance: INFLIXIMAB-DYYB
     Dosage: 400 MG EVERY 8 WEEKS
     Route: 042
     Dates: start: 20210309
  6. SULFASALAZINE. [Concomitant]
     Active Substance: SULFASALAZINE
     Dosage: 3 DF(TABLET), DAILY
     Route: 048
     Dates: start: 2016
  7. INFLECTRA [Suspect]
     Active Substance: INFLIXIMAB-DYYB
     Dosage: 400 MG EVERY 8 WEEKS
     Route: 042
     Dates: start: 20191015
  8. INFLECTRA [Suspect]
     Active Substance: INFLIXIMAB-DYYB
     Dosage: 320 MG, 0, 2 ,6 WEEKS, AND EVERY 8 WEEKS
     Route: 042
     Dates: start: 20191015
  9. INFLECTRA [Suspect]
     Active Substance: INFLIXIMAB-DYYB
     Dosage: 320 MG, 0, 2 ,6 WEEKS, AND EVERY 8 WEEKS
     Route: 042
     Dates: start: 20191015
  10. INFLECTRA [Suspect]
     Active Substance: INFLIXIMAB-DYYB
     Dosage: 400 MG EVERY 8 WEEKS
     Route: 042
     Dates: start: 20200331
  11. INFLECTRA [Suspect]
     Active Substance: INFLIXIMAB-DYYB
     Dosage: 320 MG, 0, 2 ,6 WEEKS, AND EVERY 8 WEEKS
     Route: 042
     Dates: start: 20190425
  12. INFLECTRA [Suspect]
     Active Substance: INFLIXIMAB-DYYB
     Dosage: 320 MG, 0, 2 ,6 WEEKS, AND EVERY 8 WEEKS
     Route: 042
     Dates: start: 20190814
  13. INFLECTRA [Suspect]
     Active Substance: INFLIXIMAB-DYYB
     Indication: CROHN^S DISEASE
     Dosage: 320 MG, 0, 2, 6 WEEKS, AND EVERY 8 WEEKS
     Route: 042
     Dates: start: 20180927, end: 20190914
  14. INFLECTRA [Suspect]
     Active Substance: INFLIXIMAB-DYYB
     Dosage: 400 MG EVERY 8 WEEKS
     Route: 042
     Dates: start: 20200331
  15. INFLECTRA [Suspect]
     Active Substance: INFLIXIMAB-DYYB
     Dosage: 320 MG, 0, 2 ,6 WEEKS, AND EVERY 8 WEEKS
     Route: 042
     Dates: start: 20191210
  16. INFLECTRA [Suspect]
     Active Substance: INFLIXIMAB-DYYB
     Dosage: 400 MG EVERY 8 WEEKS
     Route: 042
     Dates: start: 20200918
  17. SULFASALAZINE. [Concomitant]
     Active Substance: SULFASALAZINE
     Dosage: 1 DF (TABLETS), 4X/DAY
     Route: 048
  18. INFLECTRA [Suspect]
     Active Substance: INFLIXIMAB-DYYB
     Dosage: 320 MG, 0, 2 ,6 WEEKS, AND EVERY 8 WEEKS
     Route: 042
     Dates: start: 20181011
  19. INFLECTRA [Suspect]
     Active Substance: INFLIXIMAB-DYYB
     Dosage: 320 MG, 0, 2 ,6 WEEKS, AND EVERY 8 WEEKS
     Route: 042
     Dates: start: 20190103
  20. INFLECTRA [Suspect]
     Active Substance: INFLIXIMAB-DYYB
     Dosage: 320 MG, 0, 2 ,6 WEEKS, AND EVERY 8 WEEKS
     Route: 042
     Dates: start: 20190228
  21. INFLECTRA [Suspect]
     Active Substance: INFLIXIMAB-DYYB
     Dosage: 320 MG, 0, 2 ,6 WEEKS, AND EVERY 8 WEEKS
     Route: 042
     Dates: start: 20190814
  22. INFLECTRA [Suspect]
     Active Substance: INFLIXIMAB-DYYB
     Dosage: 320 MG, 0, 2 ,6 WEEKS, AND EVERY 8 WEEKS
     Route: 042
     Dates: start: 20200204
  23. INFLECTRA [Suspect]
     Active Substance: INFLIXIMAB-DYYB
     Dosage: 320 MG, 0, 2 ,6 WEEKS, AND EVERY 8 WEEKS
     Route: 042
     Dates: start: 20190620
  24. INFLECTRA [Suspect]
     Active Substance: INFLIXIMAB-DYYB
     Dosage: 400 MG EVERY 8 WEEKS
     Route: 042
     Dates: start: 20200721

REACTIONS (6)
  - Weight decreased [Unknown]
  - Incorrect dose administered [Unknown]
  - Off label use [Unknown]
  - Bronchitis [Recovering/Resolving]
  - Colitis ulcerative [Unknown]
  - Intentional product use issue [Unknown]

NARRATIVE: CASE EVENT DATE: 20190930
